FAERS Safety Report 15985055 (Version 1)
Quarter: 2019Q1

REPORT INFORMATION
  Report Type: Spontaneous
  Country: US (occurrence: US)
  Receive Date: 20190128
  Receipt Date: 20190128
  Transmission Date: 20190418
  Serious: No
  Sender: FDA-Public Use
  Company Number: None

PATIENT
  Age: 60 Year
  Sex: Male

DRUGS (1)
  1. CAPECITABINE. [Suspect]
     Active Substance: CAPECITABINE
     Indication: APPENDIX CANCER
     Route: 048
     Dates: start: 20181120

REACTIONS (4)
  - Confusional state [None]
  - Neuropathy peripheral [None]
  - Visual impairment [None]
  - Skin discolouration [None]

NARRATIVE: CASE EVENT DATE: 20181220
